FAERS Safety Report 10205637 (Version 2)
Quarter: 2014Q3

REPORT INFORMATION
  Report Type: Report from Study
  Country: DE (occurrence: DE)
  Receive Date: 20140529
  Receipt Date: 20140710
  Transmission Date: 20150326
  Serious: Yes (Hospitalization)
  Sender: FDA-Public Use
  Company Number: PHHY2014DE063624

PATIENT
  Sex: Female
  Weight: 70 kg

DRUGS (8)
  1. ATORVASTATINE//ATORVASTATIN [Concomitant]
     Dosage: 1 DF, QD
  2. ULTIBRO BREEZHALER [Suspect]
     Active Substance: GLYCOPYRRONIUM\INDACATEROL
     Indication: CHRONIC OBSTRUCTIVE PULMONARY DISEASE
     Dosage: 1 DF, QD
     Dates: start: 20140115
  3. PANTOPRAZOLE [Concomitant]
     Active Substance: PANTOPRAZOLE SODIUM
     Dosage: 40 MG, QD
  4. L-THYROX JOD HEXAL [Concomitant]
  5. RAMILICH [Concomitant]
     Active Substance: RAMIPRIL
     Dosage: 2.5 MG, QD
  6. PLAVIX [Concomitant]
     Active Substance: CLOPIDOGREL BISULFATE
     Dosage: 1 DF, QD
  7. ASS AL [Concomitant]
     Dosage: 100 MG, QD
  8. SALBUTAMOL [Concomitant]
     Active Substance: ALBUTEROL
     Dates: start: 201312

REACTIONS (6)
  - Coronary artery disease [Recovering/Resolving]
  - Hypertensive heart disease [Unknown]
  - Electrocardiogram ST segment depression [Unknown]
  - Coronary artery occlusion [Unknown]
  - Somatoform disorder cardiovascular [Recovered/Resolved]
  - Angina pectoris [Unknown]

NARRATIVE: CASE EVENT DATE: 20140116
